FAERS Safety Report 5387157-3 (Version None)
Quarter: 2007Q3

REPORT INFORMATION
  Report Type: 
  Country: None (occurrence: None)
  Receive Date: 20070711
  Receipt Date: 20070626
  Transmission Date: 20080115
  Serious: Yes (Death)
  Sender: FDA-Public Use
  Company Number: 2007S1004401

PATIENT
  Age: 47 Year
  Sex: Female

DRUGS (11)
  1. AMITRIPTYLINE HCL [Suspect]
     Indication: DEPRESSION
     Dates: start: 20030101
  2. ALPRAZOLAM [Suspect]
     Indication: ANXIETY
     Dates: start: 20030101
  3. FLURAZEPAM HYDROCHLORIDE [Suspect]
     Dates: start: 20030101
  4. NORTRIPTYLINE HCL [Suspect]
     Dates: start: 20030101
  5. PAXIL [Suspect]
     Dates: start: 20030101
  6. PHENTERMINE HYDROCHLORIDE [Suspect]
     Dates: start: 20030101
  7. OXYCODONE HCL [Suspect]
     Dates: start: 20030101
  8. ACETAMINOPHEN [Suspect]
     Dates: start: 20030101
  9. CAFFEINE [Suspect]
  10. NICOTINE [Suspect]
  11. ETHANOL [Suspect]

REACTIONS (2)
  - COMPLETED SUICIDE [None]
  - DRUG TOXICITY [None]
